FAERS Safety Report 8968565 (Version 2)
Quarter: 2013Q1

REPORT INFORMATION
  Report Type: Spontaneous
  Country: US (occurrence: US)
  Receive Date: 20121218
  Receipt Date: 20130315
  Transmission Date: 20140127
  Serious: No
  Sender: FDA-Public Use
  Company Number: US-BIOGENIDEC-2012BI060010

PATIENT
  Age: 29 None
  Sex: Male

DRUGS (1)
  1. TYSABRI [Suspect]
     Indication: MULTIPLE SCLEROSIS
     Route: 042
     Dates: start: 20120418

REACTIONS (4)
  - Memory impairment [Recovered/Resolved]
  - Pain [Recovered/Resolved with Sequelae]
  - Headache [Recovered/Resolved with Sequelae]
  - Asthenia [Recovered/Resolved with Sequelae]
